FAERS Safety Report 4299444-0 (Version None)
Quarter: 2004Q1

REPORT INFORMATION
  Report Type: 
  Country: None (occurrence: None)
  Receive Date: 20040219
  Receipt Date: 20040212
  Transmission Date: 20041129
  Serious: Yes (Death, Hospitalization)
  Sender: FDA-Public Use
  Company Number: FR-ROCHE-358651

PATIENT
  Age: 70 Year
  Sex: Female

DRUGS (10)
  1. LOXEN [Suspect]
     Indication: DRUG USE FOR UNKNOWN INDICATION
     Route: 048
  2. ALDACTONE [Suspect]
     Route: 048
  3. LYSODREN [Suspect]
     Indication: DRUG USE FOR UNKNOWN INDICATION
     Route: 048
     Dates: start: 20031121, end: 20031123
  4. PRAZOSIN HCL [Suspect]
     Indication: DRUG USE FOR UNKNOWN INDICATION
     Route: 048
  5. RENITEC [Suspect]
     Indication: DRUG USE FOR UNKNOWN INDICATION
     Route: 048
  6. SOTALOL HCL [Suspect]
     Indication: DRUG USE FOR UNKNOWN INDICATION
     Route: 048
  7. OMEPRAZOLE [Concomitant]
  8. ZOLPIDEM [Concomitant]
  9. ACETYLCYSTEINE [Concomitant]
  10. POTASSIUM CHLORIDE [Concomitant]

REACTIONS (11)
  - ADRENAL CARCINOMA [None]
  - ADRENAL INSUFFICIENCY [None]
  - ANAEMIA [None]
  - GENERAL PHYSICAL HEALTH DETERIORATION [None]
  - HAEMORRHAGE [None]
  - HYPERKALAEMIA [None]
  - HYPOKALAEMIA [None]
  - HYPOVOLAEMIC SHOCK [None]
  - LYMPHOPENIA [None]
  - RENAL FAILURE [None]
  - THROMBOCYTOPENIA [None]
